FAERS Safety Report 11641280 (Version 1)
Quarter: 2015Q4

REPORT INFORMATION
  Report Type: Other
  Country: US (occurrence: US)
  Receive Date: 20151019
  Receipt Date: 20151019
  Transmission Date: 20160304
  Serious: Yes (Other)
  Sender: FDA-Public Use
  Company Number: US-WARNER CHILCOTT, LLC-1043123

PATIENT

DRUGS (1)
  1. DIDRONEL [Suspect]
     Active Substance: ETIDRONATE DISODIUM
     Route: 048

REACTIONS (1)
  - Osteonecrosis of jaw [Unknown]
